FAERS Safety Report 7640110-9 (Version None)
Quarter: 2011Q3

REPORT INFORMATION
  Report Type: 
  Country: None (occurrence: None)
  Receive Date: 20110728
  Receipt Date: 20110713
  Transmission Date: 20111222
  Serious: Yes (Hospitalization)
  Sender: FDA-Public Use
  Company Number: US-BAYER-2011-061055

PATIENT
  Age: 28 Year
  Sex: Male

DRUGS (2)
  1. PARACETAMOL + DIPHENHYDRAMINE [Suspect]
  2. ACETYLCYSTEINE [Suspect]

REACTIONS (1)
  - UNEVALUABLE EVENT [None]
